FAERS Safety Report 9374067 (Version 1)
Quarter: 2013Q2

REPORT INFORMATION
  Report Type: Spontaneous
  Country: US (occurrence: US)
  Receive Date: 20130628
  Receipt Date: 20130628
  Transmission Date: 20140414
  Serious: Yes (Hospitalization)
  Sender: FDA-Public Use
  Company Number: US-ASTRAZENECA-2013SE30029

PATIENT
  Sex: Female

DRUGS (3)
  1. PLAVIX [Suspect]
     Dosage: GENERIC
     Route: 048
     Dates: start: 20130401
  2. BRILINTA [Suspect]
     Indication: STENT PLACEMENT
     Route: 048
     Dates: start: 20130424
  3. EFFIENT [Suspect]
     Route: 065

REACTIONS (8)
  - Ear swelling [Unknown]
  - Eye swelling [Unknown]
  - Urticaria [Unknown]
  - Head discomfort [Not Recovered/Not Resolved]
  - Head discomfort [Not Recovered/Not Resolved]
  - Hypertension [Unknown]
  - Dyspnoea [Not Recovered/Not Resolved]
  - Intentional drug misuse [Unknown]
